FAERS Safety Report 5917438-3 (Version None)
Quarter: 2008Q4

REPORT INFORMATION
  Report Type: 
  Country: None (occurrence: None)
  Receive Date: 20081009
  Receipt Date: 20081009
  Transmission Date: 20090506
  Serious: Yes (Other)
  Sender: FDA-Public Use
  Company Number: None

PATIENT
  Age: 50 Year
  Sex: Male
  Weight: 118 kg

DRUGS (1)
  1. FAZACLO   AZUR PHARMA [Suspect]
     Indication: BIPOLAR DISORDER
     Dosage: 100 MG BID PO
     Route: 048
     Dates: start: 20071231, end: 20081007

REACTIONS (1)
  - PULMONARY EMBOLISM [None]
